FAERS Safety Report 7398419-2 (Version None)
Quarter: 2011Q2

REPORT INFORMATION
  Report Type: 
  Country: None (occurrence: None)
  Receive Date: 20110406
  Receipt Date: 20110323
  Transmission Date: 20111010
  Serious: Yes (Hospitalization)
  Sender: FDA-Public Use
  Company Number: US-MYLANLABS-2010S1019449

PATIENT
  Age: 79 Year
  Sex: Female

DRUGS (1)
  1. ALENDRONIC ACID [Suspect]
     Route: 048

REACTIONS (1)
  - DIVERTICULITIS OESOPHAGEAL [None]
